FAERS Safety Report 6866847-7 (Version None)
Quarter: 2010Q2

REPORT INFORMATION
  Report Type: 
  Country: None (occurrence: None)
  Receive Date: 20100528
  Receipt Date: 20100210
  Transmission Date: 20101027
  Serious: No
  Sender: FDA-Public Use
  Company Number: 006734

PATIENT

DRUGS (2)
  1. LACOSAMIDE [Suspect]
     Dosage: (LOW DOSE ORAL)
     Route: 048
  2. KEPPRA [Suspect]
     Dosage: (ORAL)
     Route: 048

REACTIONS (1)
  - AGITATION [None]
